FAERS Safety Report 11935309 (Version 5)
Quarter: 2016Q4

REPORT INFORMATION
  Report Type: Spontaneous
  Country: US (occurrence: US)
  Receive Date: 20160121
  Receipt Date: 20161024
  Transmission Date: 20170206
  Serious: No
  Sender: FDA-Public Use
  Company Number: US-PFIZER INC-2015444905

PATIENT
  Age: 82 Year
  Sex: Female
  Weight: 77.55 kg

DRUGS (12)
  1. AMLODIPINE [Concomitant]
     Active Substance: AMLODIPINE BESYLATE
     Indication: BLOOD PRESSURE ABNORMAL
     Dosage: 5 MG, UNK
  2. AMLODIPINE [Concomitant]
     Active Substance: AMLODIPINE BESYLATE
     Dosage: 2.5 MG, DAILY
     Route: 048
  3. FASLODEX [Concomitant]
     Active Substance: FULVESTRANT
     Dosage: 500 MG, (SHOT EVERY 21 DAYS)
     Route: 030
  4. SIMVASTATIN. [Concomitant]
     Active Substance: SIMVASTATIN
     Indication: BLOOD CHOLESTEROL ABNORMAL
     Dosage: 20 MG, DAILY
     Route: 048
  5. ZYRTEC [Concomitant]
     Active Substance: CETIRIZINE HYDROCHLORIDE
     Dosage: UNK
  6. ASPIRIN. [Concomitant]
     Active Substance: ASPIRIN
     Indication: PROPHYLAXIS
     Dosage: 325 MG, 1X/DAY
     Route: 048
  7. CALCIUM [Concomitant]
     Active Substance: CALCIUM
     Dosage: UNK
  8. IBRANCE [Suspect]
     Active Substance: PALBOCICLIB
     Indication: BREAST CANCER METASTATIC
     Dosage: 100 MG, CYCLIC FOR 21 DAYS ON, 7 DAYS OFF
     Dates: start: 20150712
  9. IBRANCE [Suspect]
     Active Substance: PALBOCICLIB
     Dosage: UNK
  10. POTASIUM [Concomitant]
     Dosage: UNK
  11. IBRANCE [Suspect]
     Active Substance: PALBOCICLIB
     Dosage: 100 MG, CYCLIC, (21 DAYS, THEN OFF FOR 7 DAYS)
     Route: 048
  12. KIRKLAND SIGNATURE ALLER TEC ALLERGY [Concomitant]
     Active Substance: CETIRIZINE HYDROCHLORIDE
     Indication: CHRONIC SINUSITIS
     Dosage: 1 DF, DAILY
     Route: 048

REACTIONS (10)
  - Mental disorder [Unknown]
  - Breast cancer metastatic [Unknown]
  - Disease recurrence [Unknown]
  - Malaise [Unknown]
  - Eye disorder [Unknown]
  - Product use issue [Unknown]
  - Dyspnoea [Unknown]
  - Eyelid disorder [Unknown]
  - Blood pressure increased [Unknown]
  - Rhinitis [Unknown]

NARRATIVE: CASE EVENT DATE: 20160527
